FAERS Safety Report 19371542 (Version 18)
Quarter: 2024Q2

REPORT INFORMATION
  Report Type: Spontaneous
  Country: CA (occurrence: CA)
  Receive Date: 20210604
  Receipt Date: 20240530
  Transmission Date: 20240716
  Serious: Yes (Other)
  Sender: FDA-Public Use
  Company Number: CA-CELLTRION INC.-2021CA004830

PATIENT

DRUGS (26)
  1. INFLECTRA [Suspect]
     Active Substance: INFLIXIMAB-DYYB
     Indication: Colitis ulcerative
     Dosage: 300 MG, AT WEEK 0,2,6 THEN EVERY 8 WEEKS
     Route: 042
     Dates: start: 20210218, end: 20210218
  2. INFLECTRA [Suspect]
     Active Substance: INFLIXIMAB-DYYB
     Dosage: 300 MG AT WEEK 0,2,6 THEN EVERY 8 WEEKS
     Route: 042
     Dates: start: 20210303, end: 20210303
  3. INFLECTRA [Suspect]
     Active Substance: INFLIXIMAB-DYYB
     Dosage: 300 MG AT WEEK 0,2,6 THEN EVERY 8 WEEKS
     Route: 042
     Dates: start: 20210330, end: 20210330
  4. INFLECTRA [Suspect]
     Active Substance: INFLIXIMAB-DYYB
     Dosage: 300 MG AT WEEK 0,2,6 THEN EVERY 8 WEEKS
     Route: 042
     Dates: start: 20210528, end: 20210528
  5. INFLECTRA [Suspect]
     Active Substance: INFLIXIMAB-DYYB
     Dosage: 300 MG AT WEEK 0,2,6 THEN EVERY 8 WEEKS
     Route: 042
     Dates: start: 20210720, end: 20210720
  6. INFLECTRA [Suspect]
     Active Substance: INFLIXIMAB-DYYB
     Dosage: 300 MG AT WEEK 0,2,6 THEN EVERY 8 WEEKS
     Route: 042
     Dates: start: 20210916
  7. INFLECTRA [Suspect]
     Active Substance: INFLIXIMAB-DYYB
     Dosage: 300 MG AT WEEK 0,2,6 THEN EVERY 8 WEEKS
     Route: 042
     Dates: start: 20211110
  8. INFLECTRA [Suspect]
     Active Substance: INFLIXIMAB-DYYB
     Dosage: 300 MG AT WEEK 0,2,6 THEN EVERY 8 WEEKS
     Route: 042
     Dates: start: 20220106
  9. INFLECTRA [Suspect]
     Active Substance: INFLIXIMAB-DYYB
     Dosage: 300 MG AT WEEK 0,2,6 THEN EVERY 8 WEEKS
     Route: 042
     Dates: start: 20220505
  10. INFLECTRA [Suspect]
     Active Substance: INFLIXIMAB-DYYB
     Dosage: 300 MG AT WEEK 0,2,6 THEN EVERY 8 WEEKS
     Route: 042
     Dates: start: 20220706
  11. INFLECTRA [Suspect]
     Active Substance: INFLIXIMAB-DYYB
     Dosage: 300 MG AT WEEK 0,2,6 THEN EVERY 8 WEEKS
     Route: 042
     Dates: start: 20220901
  12. INFLECTRA [Suspect]
     Active Substance: INFLIXIMAB-DYYB
     Dosage: 300 MG AT WEEK 0,2,6 THEN EVERY 8 WEEKS
     Route: 042
     Dates: start: 20221031
  13. INFLECTRA [Suspect]
     Active Substance: INFLIXIMAB-DYYB
     Dosage: 300 MG AT WEEK 0,2,6 THEN EVERY 8 WEEKS
     Route: 042
     Dates: start: 20221228
  14. INFLECTRA [Suspect]
     Active Substance: INFLIXIMAB-DYYB
     Dosage: 300 MG, EVERY 8 WEEKS
     Route: 042
     Dates: start: 20230221
  15. INFLECTRA [Suspect]
     Active Substance: INFLIXIMAB-DYYB
     Dosage: 300 MG, EVERY 8 WEEKS
     Route: 042
     Dates: start: 20230418
  16. INFLECTRA [Suspect]
     Active Substance: INFLIXIMAB-DYYB
     Dosage: 300 MG EVERY 8 WEEKS
     Route: 042
     Dates: start: 20230613
  17. INFLECTRA [Suspect]
     Active Substance: INFLIXIMAB-DYYB
     Dosage: 300 MG AT WEEK 0,2,6 THEN EVERY 8 WEEKS(300MG AFTER 8 WEEKS)
     Route: 042
     Dates: start: 20230808
  18. INFLECTRA [Suspect]
     Active Substance: INFLIXIMAB-DYYB
     Dosage: 300 MG AT WEEK 0,2,6 THEN EVERY 8 WEEKS
     Route: 042
     Dates: start: 20231005
  19. INFLECTRA [Suspect]
     Active Substance: INFLIXIMAB-DYYB
     Dosage: 300 MG AT WEEK 0,2,6 THEN EVERY 8 WEEKS(300MG, 8 WEEKS AND 4 DAYS)
     Route: 042
     Dates: start: 20231204
  20. INFLECTRA [Suspect]
     Active Substance: INFLIXIMAB-DYYB
     Dosage: 300 MG AT WEEK 0,2,6 THEN EVERY 8 WEEKS (300 MG AFTER 8 WEEKS)
     Route: 042
     Dates: start: 20240129
  21. INFLECTRA [Suspect]
     Active Substance: INFLIXIMAB-DYYB
     Dosage: 300 MG AT WEEK 0,2,6 THEN EVERY 8 WEEKS (300 MG, 8 WEEKS)
     Route: 042
     Dates: start: 20240325
  22. INFLECTRA [Suspect]
     Active Substance: INFLIXIMAB-DYYB
     Dosage: 300 MG AT WEEK 0,2,6 THEN EVERY 8 WEEKS (300 MG, 8 WEEKS)
     Route: 042
     Dates: start: 20240521
  23. ASACOL [Concomitant]
     Active Substance: MESALAMINE
     Dosage: UNK
  24. MESALAMINE [Concomitant]
     Active Substance: MESALAMINE
     Dosage: 1 DF, 1X/DAY, 1 TAB DAILY
     Route: 048
  25. MESALAMINE [Concomitant]
     Active Substance: MESALAMINE
     Dosage: 1 DF, 1X/DAY 1 TAB DAILY
     Route: 048
  26. PREDNISONE [Concomitant]
     Active Substance: PREDNISONE
     Dosage: UNK

REACTIONS (5)
  - Condition aggravated [Not Recovered/Not Resolved]
  - Hypertension [Not Recovered/Not Resolved]
  - Therapeutic response shortened [Unknown]
  - Nervousness [Unknown]
  - Inappropriate schedule of product administration [Unknown]

NARRATIVE: CASE EVENT DATE: 20210101
